FAERS Safety Report 6482661-9 (Version None)
Quarter: 2009Q4

REPORT INFORMATION
  Report Type: 
  Country: None (occurrence: None)
  Receive Date: 20091209
  Receipt Date: 20091201
  Transmission Date: 20100525
  Serious: Yes (Death)
  Sender: FDA-Public Use
  Company Number: US-BIOGENIDEC-2009BI039360

PATIENT
  Sex: Female

DRUGS (1)
  1. AVONEX [Suspect]
     Indication: MULTIPLE SCLEROSIS

REACTIONS (1)
  - CEREBRAL ARTERY EMBOLISM [None]
